FAERS Safety Report 9472459 (Version 1)
Quarter: 2013Q3

REPORT INFORMATION
  Report Type: Spontaneous
  Country: US (occurrence: None)
  Receive Date: 20130821
  Receipt Date: 20130821
  Transmission Date: 20140515
  Serious: Yes (Other)
  Sender: FDA-Public Use
  Company Number: None

PATIENT
  Age: 38 Year
  Sex: Female
  Weight: 65.77 kg

DRUGS (1)
  1. ENBREL [Suspect]
     Indication: RHEUMATOID ARTHRITIS
     Dosage: 1 INJECTION?--?GIVEN INTO/UNDER THE SKIN
     Dates: start: 20130101, end: 20130730

REACTIONS (6)
  - Diverticulitis [None]
  - Sinusitis [None]
  - Abscess [None]
  - Periorbital cellulitis [None]
  - Asthma [None]
  - Bronchitis [None]
